FAERS Safety Report 24539241 (Version 1)
Quarter: 2024Q4

REPORT INFORMATION
  Report Type: Spontaneous
  Country: US (occurrence: None)
  Receive Date: 20241022
  Receipt Date: 20241022
  Transmission Date: 20250114
  Serious: Yes (Hospitalization)
  Sender: Public
  Company Number: None

PATIENT
  Age: 30 Year
  Sex: Male

DRUGS (1)
  1. AMPHETAMINE\DEXTROAMPHETAMINE [Suspect]
     Active Substance: AMPHETAMINE\DEXTROAMPHETAMINE
     Indication: Attention deficit hyperactivity disorder
     Dosage: FREQUENCY : DAILY;?
     Route: 048

REACTIONS (4)
  - Delusion [None]
  - Hallucination, auditory [None]
  - Psychotic disorder [None]
  - Hallucination, visual [None]

NARRATIVE: CASE EVENT DATE: 20240516
